FAERS Safety Report 6259027-X (Version None)
Quarter: 2009Q3

REPORT INFORMATION
  Report Type: 
  Country: None (occurrence: None)
  Receive Date: 20090707
  Receipt Date: 20090629
  Transmission Date: 20100115
  Serious: Yes (Other)
  Sender: FDA-Public Use
  Company Number: PHHY2009GB26359

PATIENT
  Age: 70 Year
  Sex: Male

DRUGS (5)
  1. ZOMETA [Suspect]
     Indication: PROSTATE CANCER METASTATIC
     Dosage: 4 MG, UNK
     Route: 042
  2. CASODEX [Concomitant]
     Dosage: 50 MG, UNK
     Route: 048
  3. ACETAMINOPHEN WITH PROPOXYPHENE HCL TAB [Concomitant]
     Dosage: 2 DF, PRN
     Route: 048
  4. DICLOFENAC SODIUM [Concomitant]
     Dosage: 50 MG, PRN
     Route: 048
  5. ZOLADEX [Concomitant]
     Dosage: 10.8 MG, UNK
     Route: 058
     Dates: start: 20080401

REACTIONS (3)
  - ALANINE AMINOTRANSFERASE INCREASED [None]
  - BLOOD ALKALINE PHOSPHATASE INCREASED [None]
  - LIVER FUNCTION TEST ABNORMAL [None]
